FAERS Safety Report 8141270-6 (Version None)
Quarter: 2012Q1

REPORT INFORMATION
  Report Type: 
  Country: None (occurrence: None)
  Receive Date: 20120103
  Receipt Date: 20110926
  Transmission Date: 20120608
  Serious: No
  Sender: FDA-Public Use
  Company Number: AE-2011-001659

PATIENT
  Age: 58 Year
  Sex: Male
  Weight: 83.9154 kg

DRUGS (5)
  1. SYNTHROID [Concomitant]
  2. REBETOL [Concomitant]
  3. LEXAPRO [Concomitant]
  4. PEGASYS [Concomitant]
  5. INCIVEK (TELAPREVIR) [Suspect]
     Dosage: 2250 MG (750 MG, 1 IN 8 HR) , ORAL
     Route: 048
     Dates: start: 20110910

REACTIONS (5)
  - RASH PRURITIC [None]
  - ERYTHEMA [None]
  - PYREXIA [None]
  - HAEMORRHOIDS [None]
  - DRY EYE [None]
